FAERS Safety Report 5740726-0 (Version None)
Quarter: 2008Q2

REPORT INFORMATION
  Report Type: 
  Country: None (occurrence: None)
  Receive Date: 20080516
  Receipt Date: 20080502
  Transmission Date: 20081010
  Serious: Yes (Other)
  Sender: FDA-Public Use
  Company Number: US-BAYER-200811103BCC

PATIENT
  Age: 54 Year
  Sex: Female
  Weight: 66 kg

DRUGS (4)
  1. ORIGINAL ALKA SELTZER EFFERVESCENT TABLETS [Suspect]
     Indication: ANTACID THERAPY
     Route: 048
     Dates: start: 20080301
  2. NEXIUM [Concomitant]
  3. PLAVIX [Concomitant]
  4. LIPITOR [Concomitant]

REACTIONS (1)
  - HAEMATEMESIS [None]
